FAERS Safety Report 16466741 (Version 3)
Quarter: 2019Q4

REPORT INFORMATION
  Report Type: Spontaneous
  Country: JP (occurrence: JP)
  Receive Date: 20190623
  Receipt Date: 20191001
  Transmission Date: 20200122
  Serious: Yes (Hospitalization, Other)
  Sender: FDA-Public Use
  Company Number: JP-AMGEN-JPNSP2019100198

PATIENT
  Age: 37 Year
  Sex: Female
  Weight: 51 kg

DRUGS (6)
  1. VECTIBIX [Suspect]
     Active Substance: PANITUMUMAB
     Dosage: 230 MILLIGRAM, Q2WK
     Route: 041
     Dates: start: 20190522, end: 20190605
  2. VECTIBIX [Suspect]
     Active Substance: PANITUMUMAB
     Dosage: 230 MILLIGRAM, Q2WK
     Route: 041
     Dates: start: 20190828
  3. VECTIBIX [Suspect]
     Active Substance: PANITUMUMAB
     Indication: COLON CANCER
     Dosage: 290 MILLIGRAM, Q2WK
     Route: 041
     Dates: start: 20190130, end: 20190508
  4. 5-FU [FLUOROURACIL] [Concomitant]
     Active Substance: FLUOROURACIL
     Indication: COLON CANCER
     Dosage: 2900 MILLIGRAM, Q2WK
     Route: 042
     Dates: start: 20190130
  5. IRINOTECAN HYDROCHLORIDE. [Concomitant]
     Active Substance: IRINOTECAN HYDROCHLORIDE
     Indication: COLON CANCER
     Dosage: 225 MILLIGRAM, Q2WK
     Route: 042
     Dates: start: 20190130
  6. CALCIUM LEVOFOLINATE [Concomitant]
     Active Substance: LEVOLEUCOVORIN CALCIUM
     Indication: COLON CANCER
     Dosage: 300 MILLIGRAM, Q2WK
     Route: 042
     Dates: start: 20190130

REACTIONS (3)
  - Dermatitis acneiform [Unknown]
  - Pulmonary embolism [Recovering/Resolving]
  - Paronychia [Unknown]

NARRATIVE: CASE EVENT DATE: 20190612
